FAERS Safety Report 16906675 (Version 2)
Quarter: 2019Q4

REPORT INFORMATION
  Report Type: Report from Study
  Country: None (occurrence: AU)
  Receive Date: 20191011
  Receipt Date: 20191119
  Transmission Date: 20200122
  Serious: Yes (Hospitalization, Other)
  Sender: FDA-Public Use
  Company Number: AU-ABBVIE-19K-008-2958379-00

PATIENT
  Sex: Female

DRUGS (1)
  1. DUODOPA [Suspect]
     Active Substance: CARBIDOPA\LEVODOPA
     Indication: PARKINSON^S DISEASE
     Dosage: 100ML GEL CASSETTE?16 HOURS INFUSION
     Route: 050
     Dates: start: 20161205

REACTIONS (4)
  - Cerebral cyst [Unknown]
  - Chronic obstructive pulmonary disease [Not Recovered/Not Resolved]
  - Parkinson^s disease [Unknown]
  - Migraine [Recovered/Resolved]
